FAERS Safety Report 21293848 (Version 1)
Quarter: 2022Q3

REPORT INFORMATION
  Report Type: Spontaneous
  Country: US (occurrence: US)
  Receive Date: 20220905
  Receipt Date: 20220905
  Transmission Date: 20221027
  Serious: Yes (Other)
  Sender: FDA-Public Use
  Company Number: US-drreddys-SPO/USA/22/0154166

PATIENT
  Age: 84 Year
  Sex: Female

DRUGS (4)
  1. AMIODARONE HYDROCHLORIDE [Interacting]
     Active Substance: AMIODARONE HYDROCHLORIDE
     Indication: Product used for unknown indication
  2. COVID-19 VACCINE NOS [Interacting]
     Active Substance: COVID-19 VACCINE NOS
     Indication: COVID-19 immunisation
     Dosage: BOOSTER-DOSE
  3. LASIX [Interacting]
     Active Substance: FUROSEMIDE
     Indication: Diuretic therapy
  4. DIGOXIN [Interacting]
     Active Substance: DIGOXIN
     Indication: Atrial fibrillation

REACTIONS (12)
  - Toxicity to various agents [Recovering/Resolving]
  - Electrocardiogram ST segment abnormal [Recovered/Resolved]
  - Dehydration [Recovering/Resolving]
  - Electrocardiogram PR prolongation [Recovered/Resolved]
  - Drug interaction [Recovering/Resolving]
  - Abdominal pain [Recovering/Resolving]
  - Influenza like illness [Recovering/Resolving]
  - Hyperkalaemia [Recovered/Resolved]
  - Acute kidney injury [Recovering/Resolving]
  - Vomiting [Recovering/Resolving]
  - Confusional state [Recovering/Resolving]
  - Bradycardia [Recovered/Resolved]
